FAERS Safety Report 23272430 (Version 1)
Quarter: 2023Q4

REPORT INFORMATION
  Report Type: Spontaneous
  Country: US (occurrence: None)
  Receive Date: 20231206
  Receipt Date: 20231206
  Transmission Date: 20240110
  Serious: Yes (Life-Threatening, Hospitalization, Disabling)
  Sender: FDA-Public Use
  Company Number: None

PATIENT
  Age: 65 Year
  Sex: Female
  Weight: 72 kg

DRUGS (1)
  1. JARDIANCE [Suspect]
     Active Substance: EMPAGLIFLOZIN
     Indication: Diabetes mellitus
     Dosage: FREQUENCY : DAILY;?
     Route: 048
     Dates: start: 20180205, end: 20230608

REACTIONS (5)
  - Urinary bladder haemorrhage [None]
  - Cystitis noninfective [None]
  - Urogenital fistula [None]
  - Urinary retention [None]
  - Retroperitoneal abscess [None]

NARRATIVE: CASE EVENT DATE: 20230202
